FAERS Safety Report 9703543 (Version 1)
Quarter: 2013Q4

REPORT INFORMATION
  Report Type: Spontaneous
  Country: US (occurrence: US)
  Receive Date: 20131122
  Receipt Date: 20131122
  Transmission Date: 20140711
  Serious: Yes (Death)
  Sender: FDA-Public Use
  Company Number: US-ASTRAZENECA-2013SE85073

PATIENT
  Sex: Female

DRUGS (1)
  1. BRILINTA [Suspect]
     Route: 048

REACTIONS (3)
  - Fall [Fatal]
  - Upper limb fracture [Fatal]
  - Malaise [Fatal]
